FAERS Safety Report 7688145-4 (Version None)
Quarter: 2011Q3

REPORT INFORMATION
  Report Type: 
  Country: None (occurrence: None)
  Receive Date: 20110817
  Receipt Date: 20110808
  Transmission Date: 20111222
  Serious: Yes (Death, Hospitalization, Other)
  Sender: FDA-Public Use
  Company Number: JP-UCBSA-006831

PATIENT
  Sex: Female

DRUGS (19)
  1. CERTOLIZUMAB PEGOL [Suspect]
     Route: 058
     Dates: start: 20100202, end: 20110118
  2. LOXOPROFEN SODIUM [Concomitant]
     Dosage: DAILY DOSE: 180MG
     Dates: start: 20100203, end: 20110807
  3. PREDNISOLONE [Concomitant]
     Dosage: DAILY DOSE: 5MG
     Dates: end: 20110807
  4. ALENDRONATE SODIUM [Concomitant]
     Dosage: 35MG/WEEK
     Dates: end: 20110807
  5. LOXOPROFEN SODIUM [Concomitant]
     Dates: start: 20100708, end: 20110807
  6. CERTOLIZUMAB PEGOL [Suspect]
     Indication: RHEUMATOID ARTHRITIS
     Route: 058
  7. CELECOXIB [Concomitant]
     Dosage: DAILY DOSE: 200MG
     Dates: start: 20090417, end: 20100202
  8. POLAPREZINC [Concomitant]
  9. DICLOFENAC SODIUM [Concomitant]
     Dosage: DAILY DOSE: 25MG
     Dates: start: 20090203, end: 20110807
  10. CERTOLIZUMAB PEGOL [Suspect]
     Route: 058
     Dates: start: 20110202, end: 20110301
  11. PREDNISOLONE [Concomitant]
     Dosage: DAILY DOSE: 6MG
     Dates: start: 20090503
  12. ALFACALCIDOL [Concomitant]
     Dosage: DAILY DOSE: 0.5 MCG
     Dates: end: 20110807
  13. PIRMENOL HYDROCHLORIDE [Concomitant]
     Dosage: DAILY DOSE: 200MG
     Dates: end: 20110807
  14. POLAPREZINC [Concomitant]
     Dosage: DAILY DOSE: 150MG
     Dates: end: 20110807
  15. KETOPROFEN [Concomitant]
     Dosage: ADEQUATE DOSE
     Dates: start: 20090529, end: 20110807
  16. ELCATONIN [Concomitant]
     Dates: start: 20100202, end: 20100317
  17. CERTOLIZUMAB PEGOL [Suspect]
     Route: 058
  18. TIZANIDINE HYDROCHLORIDE [Concomitant]
     Dosage: DAILY DOSE: 3MG
     Dates: end: 20110807
  19. TRIAZOLAM [Concomitant]
     Indication: INSOMNIA
     Dosage: DAILY DOSE: 0.25 MG IN CASE OF INSOMNIA
     Dates: end: 20110807

REACTIONS (3)
  - LYMPHOMA [None]
  - SPINAL COMPRESSION FRACTURE [None]
  - CARDIAC DISORDER [None]
